FAERS Safety Report 10803514 (Version 1)
Quarter: 2015Q1

REPORT INFORMATION
  Report Type: Spontaneous
  Country: US (occurrence: US)
  Receive Date: 20150217
  Receipt Date: 20150217
  Transmission Date: 20150721
  Serious: No
  Sender: FDA-Public Use
  Company Number: US-GLAXOSMITHKLINE-US2014042076

PATIENT
  Sex: Female

DRUGS (4)
  1. CALCIUM [Concomitant]
     Active Substance: CALCIUM
  2. BENADRYL [Concomitant]
     Active Substance: DIPHENHYDRAMINE HYDROCHLORIDE
  3. VENTOLIN HFA [Suspect]
     Active Substance: ALBUTEROL SULFATE
     Indication: MULTIPLE ALLERGIES
  4. VENTOLIN HFA [Suspect]
     Active Substance: ALBUTEROL SULFATE
     Indication: COUGH
     Dosage: 2 PUFF(S), PRN
     Route: 055
     Dates: start: 20141204

REACTIONS (1)
  - Dizziness [Not Recovered/Not Resolved]

NARRATIVE: CASE EVENT DATE: 20141221
